FAERS Safety Report 6510836-9 (Version None)
Quarter: 2009Q4

REPORT INFORMATION
  Report Type: 
  Country: None (occurrence: None)
  Receive Date: 20091222
  Receipt Date: 20090122
  Transmission Date: 20100525
  Serious: No
  Sender: FDA-Public Use
  Company Number: US-ASTRAZENECA-2009UW02251

PATIENT
  Age: 61 Year
  Sex: Male

DRUGS (6)
  1. CRESTOR [Suspect]
     Route: 048
  2. TRICOR [Concomitant]
  3. ASPIRIN [Concomitant]
  4. COQ 10 [Concomitant]
  5. GLYPESIDE [Concomitant]
  6. COREG [Concomitant]

REACTIONS (3)
  - ARTHRALGIA [None]
  - LIP SWELLING [None]
  - URTICARIA [None]
